FAERS Safety Report 10608526 (Version 4)
Quarter: 2015Q3

REPORT INFORMATION
  Report Type: Spontaneous
  Country: US (occurrence: US)
  Receive Date: 20141125
  Receipt Date: 20150716
  Transmission Date: 20151125
  Serious: Yes (Hospitalization, Other)
  Sender: FDA-Public Use
  Company Number: US-PFIZER INC-2014322121

PATIENT
  Age: 79 Year
  Sex: Male

DRUGS (6)
  1. WARFARIN [Concomitant]
     Active Substance: WARFARIN
     Dosage: 0.5 MG, UNK
  2. LOSARTAN. [Concomitant]
     Active Substance: LOSARTAN
     Dosage: 20 MG, UNK
  3. TAMSULOSIN [Concomitant]
     Active Substance: TAMSULOSIN
     Dosage: 0.4 MG, UNK
  4. BUMEX [Concomitant]
     Active Substance: BUMETANIDE
     Dosage: 1 MG, UNK
  5. REVATIO [Suspect]
     Active Substance: SILDENAFIL CITRATE
     Indication: CARDIAC DISORDER
     Dosage: 80 MG, 3X/DAY
  6. INSPRA [Suspect]
     Active Substance: EPLERENONE
     Indication: CARDIAC DISORDER
     Dosage: 20 MG, 2X/DAY

REACTIONS (2)
  - Malaise [Recovered/Resolved]
  - Cardiac failure [Recovered/Resolved]

NARRATIVE: CASE EVENT DATE: 201410
